FAERS Safety Report 22942516 (Version 2)
Quarter: 2023Q4

REPORT INFORMATION
  Report Type: Report from Study
  Country: US (occurrence: US)
  Receive Date: 20230914
  Receipt Date: 20231213
  Transmission Date: 20240110
  Serious: Yes (Other)
  Sender: FDA-Public Use
  Company Number: US-MYLANLABS-2022M1024262

PATIENT
  Sex: Male
  Weight: 59.87 kg

DRUGS (5)
  1. GLATIRAMER ACETATE [Suspect]
     Active Substance: GLATIRAMER ACETATE
     Indication: Relapsing-remitting multiple sclerosis
     Dosage: 40 MILLIGRAM, 3XW
     Route: 058
  2. GLATIRAMER ACETATE [Suspect]
     Active Substance: GLATIRAMER ACETATE
     Indication: Multiple sclerosis
     Dosage: 40 MILLIGRAM, 3XW
     Route: 058
  3. GLATIRAMER ACETATE [Suspect]
     Active Substance: GLATIRAMER ACETATE
     Dosage: 40 MILLIGRAM, 3XW
     Route: 058
  4. GLATIRAMER ACETATE [Suspect]
     Active Substance: GLATIRAMER ACETATE
     Dosage: 40 MILLIGRAM, 3XW
     Route: 058
     Dates: end: 202309
  5. GLATIRAMER ACETATE [Suspect]
     Active Substance: GLATIRAMER ACETATE
     Dosage: 40 MILLIGRAM, 3XW
     Route: 058

REACTIONS (16)
  - Loss of consciousness [Unknown]
  - Tunnel vision [Unknown]
  - Dizziness [Unknown]
  - Chest discomfort [Unknown]
  - Hot flush [Unknown]
  - Dyspnoea [Unknown]
  - Injection site swelling [Unknown]
  - Injection site pain [Unknown]
  - Injection site mass [Unknown]
  - Flushing [Unknown]
  - Anxiety [Unknown]
  - Chills [Unknown]
  - Pain [Unknown]
  - Palpitations [Unknown]
  - Confusional state [Unknown]
  - Injection site reaction [Unknown]
